FAERS Safety Report 20786451 (Version 1)
Quarter: 2022Q2

REPORT INFORMATION
  Report Type: Spontaneous
  Country: US (occurrence: None)
  Receive Date: 20220505
  Receipt Date: 20220505
  Transmission Date: 20220720
  Serious: No
  Sender: FDA-Public Use
  Company Number: US-ROCHE-2937373

PATIENT
  Sex: Male

DRUGS (1)
  1. OCREVUS [Suspect]
     Active Substance: OCRELIZUMAB
     Indication: Product used for unknown indication
     Route: 065

REACTIONS (6)
  - Insomnia [Unknown]
  - Pyrexia [Unknown]
  - Infusion related reaction [Unknown]
  - Adverse drug reaction [Unknown]
  - Drug intolerance [Unknown]
  - Somnolence [Unknown]
